FAERS Safety Report 4268600-X (Version None)
Quarter: 2004Q1

REPORT INFORMATION
  Report Type: 
  Country: None (occurrence: None)
  Receive Date: 20040112
  Receipt Date: 20040105
  Transmission Date: 20041129
  Serious: Yes (Other)
  Sender: FDA-Public Use
  Company Number: NO-GLAXOSMITHKLINE-B0319066A

PATIENT
  Age: 57 Year
  Sex: Female

DRUGS (2)
  1. ZYBAN [Suspect]
     Indication: EX-SMOKER
  2. ACETYLSALICYLIC ACID SRT [Concomitant]

REACTIONS (2)
  - DEPRESSION [None]
  - DRUG WITHDRAWAL SYNDROME [None]
